FAERS Safety Report 9911286 (Version 1)
Quarter: 2014Q1

REPORT INFORMATION
  Report Type: Spontaneous
  Country: FR (occurrence: FR)
  Receive Date: 20140219
  Receipt Date: 20140219
  Transmission Date: 20141002
  Serious: Yes (Hospitalization)
  Sender: FDA-Public Use
  Company Number: FR-BRISTOL-MYERS SQUIBB COMPANY-20173977

PATIENT
  Age: 81 Year
  Sex: Male

DRUGS (7)
  1. COUMADINE [Suspect]
     Route: 048
     Dates: end: 20130807
  2. XARELTO [Concomitant]
     Dosage: FILM-COATED TABLET
     Route: 048
     Dates: start: 20131001, end: 20131017
  3. DEROXAT [Concomitant]
     Indication: ANXIETY
     Route: 048
     Dates: start: 20130827
  4. ARIXTRA [Concomitant]
     Route: 058
     Dates: start: 20130809, end: 20131001
  5. STILNOX [Concomitant]
     Dosage: FILM-COATED SCORED TABLET
     Route: 048
  6. PERINDOPRIL [Concomitant]
     Route: 048
  7. ALPRAZOLAM [Concomitant]
     Dates: start: 20130816

REACTIONS (3)
  - Melaena [Recovered/Resolved]
  - Anaemia [Not Recovered/Not Resolved]
  - Renal failure [Unknown]
